FAERS Safety Report 6771315-7 (Version None)
Quarter: 2010Q2

REPORT INFORMATION
  Report Type: 
  Country: None (occurrence: None)
  Receive Date: 20100614
  Receipt Date: 20100607
  Transmission Date: 20101027
  Serious: Yes (Hospitalization)
  Sender: FDA-Public Use
  Company Number: 2010AL003323

PATIENT
  Age: 61 Year
  Sex: Male

DRUGS (1)
  1. SULFAMETHOXAZOLE AND TRIMETHOPRIM [Suspect]
     Indication: PNEUMOCYSTIS JIROVECI PNEUMONIA

REACTIONS (7)
  - CRYSTALLURIA [None]
  - DEHYDRATION [None]
  - HAEMATURIA [None]
  - MEDICAL DEVICE COMPLICATION [None]
  - RENAL FAILURE ACUTE [None]
  - URINARY CASTS [None]
  - WHITE BLOOD CELLS URINE POSITIVE [None]
